APPROVED DRUG PRODUCT: HYDROCHLOROTHIAZIDE
Active Ingredient: HYDROCHLOROTHIAZIDE
Strength: 12.5MG
Dosage Form/Route: CAPSULE;ORAL
Application: A090510 | Product #001 | TE Code: AB
Applicant: UNICHEM LABORATORIES LTD
Approved: Jan 19, 2010 | RLD: No | RS: No | Type: RX